FAERS Safety Report 5324763-6 (Version None)
Quarter: 2007Q2

REPORT INFORMATION
  Report Type: 
  Country: None (occurrence: None)
  Receive Date: 20070515
  Receipt Date: 20070508
  Transmission Date: 20071010
  Serious: Yes (Other)
  Sender: FDA-Public Use
  Company Number: PHBS2007ES07736

PATIENT
  Age: 59 Year
  Sex: Female

DRUGS (1)
  1. ZOMETA [Suspect]
     Dosage: 4 MG/6 TIMES PER YEAR
     Dates: start: 20061101

REACTIONS (1)
  - OSTEONECROSIS [None]
